FAERS Safety Report 10649804 (Version 1)
Quarter: 2014Q4

REPORT INFORMATION
  Report Type: Spontaneous
  Country: BR (occurrence: BR)
  Receive Date: 20141212
  Receipt Date: 20141212
  Transmission Date: 20150529
  Serious: Yes (Hospitalization)
  Sender: FDA-Public Use
  Company Number: BR-ASTRAZENECA-2014SE94504

PATIENT
  Age: 954 Month
  Sex: Female
  Weight: 60 kg

DRUGS (10)
  1. CONCOR [Concomitant]
     Active Substance: BISOPROLOL FUMARATE
     Route: 048
  2. ZETIA [Concomitant]
     Active Substance: EZETIMIBE
     Dosage: FIVE TIMES A WEEK
     Route: 048
  3. ATACAND [Suspect]
     Active Substance: CANDESARTAN CILEXETIL
     Indication: HYPERTENSION
     Route: 048
  4. PANTOPRAZOLE [Concomitant]
     Active Substance: PANTOPRAZOLE SODIUM
     Route: 048
  5. TICLOPIDINE [Concomitant]
     Active Substance: TICLOPIDINE
     Route: 048
  6. ATORVASTATIN [Concomitant]
     Active Substance: ATORVASTATIN
     Dosage: FIVE TIMES A WEEK
     Route: 048
  7. REUCOR [Concomitant]
     Route: 048
  8. NATRILIX [Concomitant]
     Active Substance: INDAPAMIDE
     Dosage: DAILY
     Route: 048
  9. GLIFAGE [Suspect]
     Active Substance: METFORMIN HYDROCHLORIDE
     Indication: TYPE 2 DIABETES MELLITUS
     Route: 048
  10. GALVUS [Concomitant]
     Active Substance: VILDAGLIPTIN
     Route: 048

REACTIONS (1)
  - Arterial occlusive disease [Recovered/Resolved]

NARRATIVE: CASE EVENT DATE: 201411
